FAERS Safety Report 5905868-5 (Version None)
Quarter: 2008Q4

REPORT INFORMATION
  Report Type: 
  Country: None (occurrence: None)
  Receive Date: 20081001
  Receipt Date: 20081001
  Transmission Date: 20090506
  Serious: Yes (Life-Threatening)
  Sender: FDA-Public Use
  Company Number: None

PATIENT
  Age: 41 Year
  Sex: Male
  Weight: 88.4514 kg

DRUGS (3)
  1. MITOXANTRONE [Suspect]
     Indication: DEMYELINATION
     Dosage: 12M2 VARIED IV DRIP
     Route: 041
     Dates: start: 20070101, end: 20070930
  2. ZOFRAN [Concomitant]
  3. IV SOLUMEDROL [Concomitant]

REACTIONS (6)
  - ACUTE MYELOID LEUKAEMIA [None]
  - BORRELIA INFECTION [None]
  - CENTRAL NERVOUS SYSTEM LESION [None]
  - CONDITION AGGRAVATED [None]
  - DEMYELINATION [None]
  - DRUG INEFFECTIVE [None]
